FAERS Safety Report 5963815-4 (Version None)
Quarter: 2008Q4

REPORT INFORMATION
  Report Type: 
  Country: None (occurrence: None)
  Receive Date: 20081121
  Receipt Date: 20081121
  Transmission Date: 20090506
  Serious: Yes (Death)
  Sender: FDA-Public Use
  Company Number: None

PATIENT
  Age: 40 Year
  Sex: Female
  Weight: 45.3597 kg

DRUGS (7)
  1. ZERIT [Suspect]
     Indication: HIV INFECTION
     Dosage: 60 MG BID PO
     Route: 048
     Dates: start: 20080910, end: 20081013
  2. EPIVIR [Suspect]
     Indication: HIV INFECTION
     Dosage: 300 MG BID PO
     Route: 048
     Dates: start: 20080910, end: 20081013
  3. VIRAMUNE [Suspect]
     Indication: HIV INFECTION
     Dosage: 400 MG BID PO
     Route: 048
     Dates: start: 20080910, end: 20081013
  4. PROTEIN POWDER [Concomitant]
  5. IRON/FOLIC ACID [Concomitant]
  6. ISONIAZID [Concomitant]
  7. VITAMIN B6 [Concomitant]

REACTIONS (5)
  - ALANINE AMINOTRANSFERASE DECREASED [None]
  - DIZZINESS [None]
  - DYSARTHRIA [None]
  - HAEMOGLOBIN DECREASED [None]
  - HYPOAESTHESIA [None]
